FAERS Safety Report 9596845 (Version 2)
Quarter: 2014Q2

REPORT INFORMATION
  Report Type: Spontaneous
  Country: GB (occurrence: GB)
  Receive Date: 20131004
  Receipt Date: 20140509
  Transmission Date: 20141212
  Serious: Yes (Death)
  Sender: FDA-Public Use
  Company Number: PHHY2013GB107554

PATIENT
  Sex: Male

DRUGS (5)
  1. DIAZEPAM [Suspect]
     Dosage: 5 MG
  2. OLANZAPINE [Suspect]
  3. AMITRIPTYLINE [Interacting]
     Indication: DEPRESSION
     Dosage: 50 MG, EVERY NIGHT
     Route: 048
  4. MORPHINE [Interacting]
     Dosage: 30 MG, BID
  5. VENLAFAXINE [Concomitant]

REACTIONS (3)
  - Toxicity to various agents [Fatal]
  - Drug screen positive [Fatal]
  - Drug interaction [Fatal]
